FAERS Safety Report 12080441 (Version 1)
Quarter: 2016Q1

REPORT INFORMATION
  Report Type: Report from Study
  Country: BR (occurrence: BR)
  Receive Date: 20160216
  Receipt Date: 20160216
  Transmission Date: 20160526
  Serious: Yes (Other)
  Sender: FDA-Public Use
  Company Number: BR-REGENERON PHARMACEUTICALS, INC.-2016-11962

PATIENT

DRUGS (1)
  1. EYLEA [Suspect]
     Active Substance: AFLIBERCEPT
     Indication: MACULAR DEGENERATION
     Dosage: EVERY 40-50 DAYS, TOTAL OF 12 INJECTIONS (6 PER EYE)
     Route: 031
     Dates: start: 20140901

REACTIONS (2)
  - Drug ineffective [Unknown]
  - Visual impairment [Unknown]
